FAERS Safety Report 17178514 (Version 5)
Quarter: 2020Q1

REPORT INFORMATION
  Report Type: Report from Study
  Country: None (occurrence: GB)
  Receive Date: 20191219
  Receipt Date: 20200309
  Transmission Date: 20200409
  Serious: Yes (Other)
  Sender: FDA-Public Use
  Company Number: US-ABBVIE-19K-163-3198610-00

PATIENT
  Age: 27 Year
  Sex: Male
  Weight: 76 kg

DRUGS (4)
  1. HUMIRA [Suspect]
     Active Substance: ADALIMUMAB
     Dosage: DAY 15
     Route: 058
     Dates: start: 2019, end: 2019
  2. HUMIRA [Suspect]
     Active Substance: ADALIMUMAB
     Indication: CROHN^S DISEASE
     Route: 058
  3. HUMIRA [Suspect]
     Active Substance: ADALIMUMAB
     Route: 058
     Dates: start: 201906
  4. HUMIRA [Suspect]
     Active Substance: ADALIMUMAB
     Indication: CROHN^S DISEASE
     Dosage: DAY 1
     Route: 058
     Dates: start: 2019, end: 2019

REACTIONS (16)
  - Scar [Unknown]
  - Intestinal resection [Unknown]
  - Oral herpes [Unknown]
  - Sepsis [Unknown]
  - Injection site pain [Recovered/Resolved]
  - Pyrexia [Unknown]
  - Fistula [Unknown]
  - Anxiety [Recovering/Resolving]
  - Incorrect dose administered [Unknown]
  - Insomnia [Recovering/Resolving]
  - Depression [Recovering/Resolving]
  - Ulcer [Unknown]
  - Injection site haemorrhage [Recovered/Resolved]
  - Injection site reaction [Recovered/Resolved]
  - Device issue [Recovered/Resolved]
  - Crohn^s disease [Unknown]

NARRATIVE: CASE EVENT DATE: 201406
